FAERS Safety Report 6244246-9 (Version None)
Quarter: 2009Q2

REPORT INFORMATION
  Report Type: 
  Country: None (occurrence: None)
  Receive Date: 20090625
  Receipt Date: 20081212
  Transmission Date: 20091009
  Serious: No
  Sender: FDA-Public Use
  Company Number: US-KINGPHARMUSA00001-K200801404

PATIENT
  Age: 52 Year
  Sex: Male
  Weight: 76.19 kg

DRUGS (1)
  1. BICILLIN L-A [Suspect]
     Indication: LYME DISEASE
     Dosage: 1,200,000 U  TIW
     Route: 030
     Dates: start: 20081208

REACTIONS (2)
  - INJECTION SITE MASS [None]
  - WRONG TECHNIQUE IN DRUG USAGE PROCESS [None]
